FAERS Safety Report 4534216-0 (Version None)
Quarter: 2004Q4

REPORT INFORMATION
  Report Type: 
  Country: None (occurrence: None)
  Receive Date: 20041221
  Receipt Date: 20041221
  Transmission Date: 20050328
  Serious: Yes (Life-Threatening, Other)
  Sender: FDA-Public Use
  Company Number: None

PATIENT
  Age: 25 Year
  Sex: Female
  Weight: 102.0593 kg

DRUGS (1)
  1. LEVOTHYROXINE   137MCG   CVS PYARMACY [Suspect]
     Indication: THYROID DISORDER
     Dosage: 1 PILL   ONCE A DAY   ORAL
     Route: 048
     Dates: start: 20041210, end: 20041217

REACTIONS (11)
  - ALOPECIA [None]
  - ASTHENIA [None]
  - BALANCE DISORDER [None]
  - EYE PAIN [None]
  - FALL [None]
  - HEART RATE INCREASED [None]
  - HYPERSOMNIA [None]
  - MYALGIA [None]
  - PHARMACEUTICAL PRODUCT COMPLAINT [None]
  - TREMOR [None]
  - WEIGHT INCREASED [None]
